FAERS Safety Report 9002979 (Version 1)
Quarter: 2013Q1

REPORT INFORMATION
  Report Type: Spontaneous
  Country: US (occurrence: US)
  Receive Date: 20130108
  Receipt Date: 20130108
  Transmission Date: 20140127
  Serious: Yes (Death, Hospitalization)
  Sender: FDA-Public Use
  Company Number: US-AMGEN-USASP2013000875

PATIENT
  Age: 70 Year
  Sex: Male

DRUGS (1)
  1. ENBREL [Suspect]
     Indication: RHEUMATOID ARTHRITIS
     Dosage: UNK
     Dates: start: 20120220, end: 201212

REACTIONS (6)
  - Gastric cancer [Fatal]
  - Gastrointestinal carcinoma [Fatal]
  - Tumour invasion [Fatal]
  - Cardiac disorder [Recovered/Resolved]
  - Vomiting [Recovered/Resolved]
  - Pneumonia [Fatal]
